FAERS Safety Report 23227390 (Version 2)
Quarter: 2023Q4

REPORT INFORMATION
  Report Type: Spontaneous
  Country: FR (occurrence: FR)
  Receive Date: 20231124
  Receipt Date: 20231130
  Transmission Date: 20240110
  Serious: Yes (Other)
  Sender: FDA-Public Use
  Company Number: None

PATIENT
  Age: 39 Year
  Sex: Female

DRUGS (3)
  1. CLINDAMYCIN HYDROCHLORIDE [Suspect]
     Active Substance: CLINDAMYCIN HYDROCHLORIDE
     Indication: Prophylaxis
     Dosage: 600 MG, SINGLE
     Route: 048
     Dates: start: 20231009, end: 20231009
  2. EPINEPHRINE HYDROCHLORIDE [Suspect]
     Active Substance: EPINEPHRINE HYDROCHLORIDE
     Indication: Local anaesthesia
     Dosage: UNK
     Route: 051
     Dates: start: 20231009, end: 20231009
  3. ARTICAINE HYDROCHLORIDE [Suspect]
     Active Substance: ARTICAINE HYDROCHLORIDE
     Indication: Local anaesthesia
     Dosage: UNK
     Route: 051
     Dates: start: 20231009, end: 20231009

REACTIONS (1)
  - Hemiparesis [Recovered/Resolved]

NARRATIVE: CASE EVENT DATE: 20231009
